FAERS Safety Report 14869404 (Version 1)
Quarter: 2018Q2

REPORT INFORMATION
  Report Type: Spontaneous
  Country: FR (occurrence: FR)
  Receive Date: 20180509
  Receipt Date: 20180509
  Transmission Date: 20180711
  Serious: Yes (Hospitalization, Other)
  Sender: FDA-Public Use
  Company Number: FR-MERCK KGAA-2047475

PATIENT
  Age: 23 Year
  Sex: Male

DRUGS (1)
  1. NOVOTHYROX [Suspect]
     Active Substance: LEVOTHYROXINE SODIUM
     Indication: HYPOTHYROIDISM

REACTIONS (24)
  - Fatigue [None]
  - Tension [None]
  - Malaise [None]
  - Diabetes mellitus inadequate control [None]
  - Gastrointestinal disorder [None]
  - Diarrhoea [None]
  - Hospitalisation [None]
  - Depression [None]
  - Dizziness [None]
  - Dysstasia [None]
  - Haematocrit increased [None]
  - Affect lability [None]
  - Headache [None]
  - Blood thyroid stimulating hormone increased [None]
  - Tremor [None]
  - Insomnia [None]
  - Asthenia [None]
  - Anger [None]
  - Neutrophil count increased [None]
  - C-reactive protein increased [None]
  - Impaired work ability [None]
  - White blood cell count increased [None]
  - Monocyte count increased [None]
  - Mood swings [None]

NARRATIVE: CASE EVENT DATE: 20170106
